FAERS Safety Report 10547746 (Version 1)
Quarter: 2014Q4

REPORT INFORMATION
  Report Type: Spontaneous
  Country: US (occurrence: None)
  Receive Date: 20141024
  Receipt Date: 20141024
  Transmission Date: 20150529
  Serious: Yes (Hospitalization)
  Sender: FDA-Public Use
  Company Number: None

PATIENT
  Age: 85 Year
  Sex: Male
  Weight: 75.1 kg

DRUGS (1)
  1. HYDRALAZINE [Suspect]
     Active Substance: HYDRALAZINE HYDROCHLORIDE
     Indication: BLOOD PRESSURE
     Route: 048
     Dates: start: 20140203, end: 20140609

REACTIONS (8)
  - Gout [None]
  - Blood creatinine increased [None]
  - Hypertension [None]
  - Chronic kidney disease [None]
  - Tachycardia [None]
  - Rash [None]
  - Eczema [None]
  - Pain in extremity [None]

NARRATIVE: CASE EVENT DATE: 20140627
